FAERS Safety Report 25854123 (Version 1)
Quarter: 2025Q3

REPORT INFORMATION
  Report Type: Spontaneous
  Country: US (occurrence: US)
  Receive Date: 20250926
  Receipt Date: 20250926
  Transmission Date: 20251021
  Serious: No
  Sender: PFIZER
  Company Number: US-PFIZER INC-202300297767

PATIENT
  Age: 67 Year
  Sex: Female
  Weight: 50.8 kg

DRUGS (1)
  1. PAXLOVID [Suspect]
     Active Substance: NIRMATRELVIR\RITONAVIR
     Dosage: UNK UNK, 2X/DAY

REACTIONS (3)
  - Product label issue [Unknown]
  - Product communication issue [Unknown]
  - Product dispensing issue [Unknown]
